FAERS Safety Report 19469137 (Version 2)
Quarter: 2021Q3

REPORT INFORMATION
  Report Type: Report from Study
  Country: US (occurrence: US)
  Receive Date: 20210628
  Receipt Date: 20210706
  Transmission Date: 20211014
  Serious: Yes (Hospitalization)
  Sender: FDA-Public Use
  Company Number: US-EXELIXIS-XL18421041719

PATIENT

DRUGS (3)
  1. NIVOLUMAB [Suspect]
     Active Substance: NIVOLUMAB
     Indication: METASTATIC MALIGNANT MELANOMA
     Dosage: 331 MG, Q3WEEKS
     Route: 042
     Dates: start: 20210330, end: 20210512
  2. XL184 [Suspect]
     Active Substance: CABOZANTINIB
     Indication: METASTATIC MALIGNANT MELANOMA
     Dosage: 40 MG, QD
     Route: 048
     Dates: start: 20210330, end: 20210512
  3. IPILIMUMAB [Suspect]
     Active Substance: IPILIMUMAB
     Indication: METASTATIC MALIGNANT MELANOMA
     Dosage: 110 MG, Q3WEEKS
     Route: 042
     Dates: start: 20210330, end: 20210512

REACTIONS (4)
  - Hepatotoxicity [Unknown]
  - Asthenia [Unknown]
  - Fatigue [Unknown]
  - Hyperglycaemia [Recovering/Resolving]

NARRATIVE: CASE EVENT DATE: 20210621
